FAERS Safety Report 5371446-2 (Version None)
Quarter: 2007Q2

REPORT INFORMATION
  Report Type: 
  Country: None (occurrence: None)
  Receive Date: 20070615
  Receipt Date: 20061102
  Transmission Date: 20071010
  Serious: Yes (Other)
  Sender: FDA-Public Use
  Company Number: 200615016US

PATIENT
  Age: 45 Year
  Sex: Female

DRUGS (7)
  1. LANTUS [Suspect]
     Indication: DIABETES MELLITUS INSULIN-DEPENDENT
     Dosage: 20 U HS INJ
     Dates: start: 20060530, end: 20060607
  2. LANTUS [Suspect]
     Indication: DIABETES MELLITUS INSULIN-DEPENDENT
     Dosage: 28 U HS INJ
  3. OPTICLIK [Suspect]
     Indication: DIABETES MELLITUS INSULIN-DEPENDENT
     Dates: start: 20060530
  4. MULTI-VITAMIN [Concomitant]
  5. CALCIUM CHLORIDE [Concomitant]
  6. PREVACID [Concomitant]
  7. INSULIN (HUMALOG /00030501/) [Concomitant]

REACTIONS (2)
  - FEELING ABNORMAL [None]
  - HYPERGLYCAEMIA [None]
